FAERS Safety Report 9844547 (Version 1)
Quarter: 2014Q1

REPORT INFORMATION
  Report Type: Spontaneous
  Country: CN (occurrence: None)
  Receive Date: 20140123
  Receipt Date: 20140123
  Transmission Date: 20141002
  Serious: Yes (Other)
  Sender: FDA-Public Use
  Company Number: 7262947

PATIENT
  Age: 36 Year
  Sex: Female

DRUGS (2)
  1. EUTHYROX [Suspect]
     Indication: THYROIDECTOMY
     Route: 048
     Dates: start: 20130315
  2. CALCIUM (CALCIUM) (TABLETS) (CALCIUM) [Concomitant]
     Route: 048
     Dates: start: 201310

REACTIONS (5)
  - Convulsion [None]
  - Muscle spasms [None]
  - Eye swelling [None]
  - Tri-iodothyronine increased [None]
  - Thyroxine increased [None]
